FAERS Safety Report 8254867-X (Version None)
Quarter: 2012Q2

REPORT INFORMATION
  Report Type: 
  Country: None (occurrence: None)
  Receive Date: 20120403
  Receipt Date: 20120323
  Transmission Date: 20120825
  Serious: Yes (Death, Hospitalization)
  Sender: FDA-Public Use
  Company Number: JP-GENZYME-THYM-1003154

PATIENT
  Age: 6 Year
  Sex: Male
  Weight: 19 kg

DRUGS (37)
  1. FUROSEMIDE [Concomitant]
     Indication: HYPERTENSION
     Dosage: UNK
     Route: 065
     Dates: start: 20111109, end: 20111211
  2. MINOCYCLINE HYDROCHLORIDE [Concomitant]
     Indication: BACTERIAL INFECTION
     Dosage: UNK
     Route: 065
     Dates: start: 20111220, end: 20120104
  3. SULBACTAM SODIUM CEFOPERAZONE SODIUM [Concomitant]
     Indication: BACTERIAL INFECTION
     Dosage: UNK
     Route: 065
     Dates: start: 20111221, end: 20120104
  4. VANCOMYCIN HYDROCHLORIDE [Concomitant]
     Indication: BACTERIAL INFECTION
     Dosage: UNK
     Route: 065
     Dates: start: 20111108, end: 20111206
  5. PAZUFLOXACIN [Concomitant]
     Indication: BACTERIAL INFECTION
     Dosage: UNK
     Route: 065
     Dates: start: 20111118, end: 20111201
  6. MICAFUNGIN SODIUM [Concomitant]
     Indication: ANTIFUNGAL PROPHYLAXIS
     Dosage: UNK
     Route: 065
     Dates: start: 20111104, end: 20111217
  7. SODIUM CHLORIDE [Concomitant]
     Indication: DEHYDRATION
     Dosage: UNK
     Route: 065
     Dates: start: 20111128, end: 20111214
  8. MIXED AMINO ACID CARBOHYDRATE ELECTROLYTE VITAMIN COMBINED DRUG [Concomitant]
     Dosage: UNK
     Route: 065
     Dates: start: 20111117, end: 20111208
  9. DAPTOMYCIN [Concomitant]
     Indication: BACTERIAL INFECTION
     Dosage: UNK
     Route: 065
     Dates: start: 20111218, end: 20120113
  10. ALBUMIN (HUMAN) [Concomitant]
     Indication: HYPOALBUMINAEMIA
     Dosage: UNK
     Route: 065
     Dates: start: 20111114, end: 20120113
  11. FENTANYL CITRATE [Concomitant]
     Indication: PAIN
     Dosage: UNK
     Route: 065
     Dates: start: 20111023, end: 20120113
  12. MIXED AMINO ACID CARBOHYDRATE ELECTROLYTE VITAMIN COMBINED DRUG [Concomitant]
     Dosage: UNK
     Route: 065
     Dates: start: 20111208, end: 20111224
  13. LENOGRASTIM [Concomitant]
     Indication: NEUTROPENIA
     Dosage: UNK
     Route: 065
     Dates: start: 20111207, end: 20120106
  14. ITRACONAZOLE [Concomitant]
     Indication: ANTIFUNGAL PROPHYLAXIS
     Dosage: UNK
     Route: 065
     Dates: start: 20111217, end: 20120113
  15. SULPYRIN [Concomitant]
     Indication: PYREXIA
     Dosage: UNK
     Route: 065
     Dates: start: 20111217, end: 20120112
  16. RITUXIMAB [Concomitant]
     Indication: EPSTEIN-BARR VIRUS INFECTION
     Dosage: UNK
     Route: 065
     Dates: start: 20111210, end: 20111210
  17. CEFEPIME HYDROCHLORIDE [Concomitant]
     Indication: BACTERIAL INFECTION
     Dosage: UNK
     Route: 065
     Dates: start: 20111201, end: 20111209
  18. MIDAZOLAM [Concomitant]
     Indication: SEDATION
     Dosage: UNK
     Route: 065
     Dates: start: 20111115, end: 20120113
  19. NICARDIPINE HYDROCHLORIDE [Concomitant]
     Indication: HYPERTENSION
     Dosage: UNK
     Route: 065
     Dates: start: 20111013, end: 20111229
  20. FAMOTIDINE [Concomitant]
     Indication: PROPHYLAXIS AGAINST GASTROINTESTINAL ULCER
     Dosage: UNK
     Route: 065
     Dates: start: 20111017, end: 20120113
  21. MIXED AMINO ACID CARBOHYDRATE ELECTROLYTE VITAMIN COMBINED DRUG [Concomitant]
     Indication: MALNUTRITION
     Dosage: UNK
     Route: 065
     Dates: start: 20111224, end: 20120113
  22. METHOTREXATE [Concomitant]
     Indication: GRAFT VERSUS HOST DISEASE
     Dosage: UNK
     Route: 065
     Dates: start: 20111213, end: 20111217
  23. THYMOGLOBULIN [Suspect]
     Dosage: 50 MG, QD
     Route: 042
     Dates: start: 20111125
  24. CYCLOSPORINE [Concomitant]
     Indication: PROPHYLAXIS AGAINST GRAFT VERSUS HOST DISEASE
     Dosage: UNK
     Route: 065
     Dates: start: 20111118, end: 20120113
  25. FILGRASTIM [Concomitant]
     Indication: NEUTROPENIA
     Dosage: UNK
     Route: 066
     Dates: start: 20111108, end: 20111118
  26. MULTIPLE VITAMIN FOR TOTAL PARENTERAL NUTRITION [Concomitant]
     Indication: MALNUTRITION
     Dosage: UNK
     Route: 065
     Dates: start: 20111114, end: 20111117
  27. FREEZE DRIED POLYETHYLENE GLYCOL TREATED HUMAN NORMAL IMMUNOGLOBULIN [Concomitant]
     Indication: HYPOGAMMAGLOBULINAEMIA
     Dosage: UNK
     Route: 065
     Dates: end: 20120110
  28. FOSFOMYCIN SODIUM [Concomitant]
     Indication: BACTERIAL INFECTION
     Dosage: UNK
     Route: 065
     Dates: start: 20111210, end: 20111215
  29. PREDNISOLONE [Concomitant]
     Indication: PROPHYLAXIS AGAINST GRAFT VERSUS HOST DISEASE
     Dosage: UNK
     Route: 065
     Dates: start: 20111017, end: 20120113
  30. DEXMEDETOMIDINE HYDROCHLORIDE [Concomitant]
     Indication: SEDATION
     Dosage: UNK
     Route: 065
     Dates: start: 20111115, end: 20111205
  31. DINOPROST [Concomitant]
     Indication: ILEUS
     Dosage: UNK
     Route: 065
     Dates: start: 20111221, end: 20120102
  32. MEROPENEM [Concomitant]
     Indication: BACTERIAL INFECTION
     Dosage: UNK
     Route: 065
     Dates: start: 20120104, end: 20120110
  33. MAINTENANCE MEDIUM [Concomitant]
     Indication: DEHYDRATION
     Dosage: UNK
     Route: 065
     Dates: start: 20111114, end: 20111117
  34. INSULIN HUMAN [Concomitant]
     Indication: HYPERGLYCAEMIA
     Dosage: UNK
     Route: 065
  35. METHYLPREDNISOLONE SODIUM SUCCINATE [Concomitant]
     Indication: PREMEDICATION
     Dosage: UNK
     Route: 065
     Dates: start: 20111122, end: 20111126
  36. MANGANESE CHLORIDE_ZINC SULFATE COMBINED DRUG [Concomitant]
     Indication: MALNUTRITION
     Dosage: UNK
     Route: 065
     Dates: start: 20111114, end: 20111117
  37. THYMOGLOBULIN [Suspect]
     Indication: ACUTE GRAFT VERSUS HOST DISEASE
     Dosage: 50 MG, QD
     Route: 042
     Dates: start: 20111122

REACTIONS (4)
  - CYTOKINE STORM [None]
  - RESPIRATORY FAILURE [None]
  - GRAFT VERSUS HOST DISEASE [None]
  - VIRAL HAEMORRHAGIC CYSTITIS [None]
